FAERS Safety Report 8906654 (Version 1)
Quarter: 2012Q4

REPORT INFORMATION
  Report Type: 
  Country: US (occurrence: US)
  Receive Date: 20121113
  Receipt Date: 20121113
  Transmission Date: 20130627
  Serious: No
  Sender: FDA-Public Use
  Company Number: US-AMGEN-USASP2012011122

PATIENT
  Age: 51 Year
  Sex: Female

DRUGS (15)
  1. ENBREL [Suspect]
     Indication: PRODUCT USED FOR UNKNOWN INDICATION
     Dosage: 50 mg, qwk
     Route: 058
     Dates: start: 20120106
  2. PROMETRIUM                         /00376202/ [Concomitant]
     Dosage: 100 mg, UNK
  3. SERTRALINE [Concomitant]
     Dosage: 50 mg, UNK
  4. TORSEMIDE [Concomitant]
     Dosage: 10 mg, UNK
  5. METHOTREXATE [Concomitant]
     Dosage: 2.5 mg, UNK
  6. TRAZODONE [Concomitant]
     Dosage: 50 mg, UNK
  7. PRAVASTATIN [Concomitant]
     Dosage: 40 mg, UNK
  8. FOLIC ACID [Concomitant]
     Dosage: 1 mg, UNK
  9. KLOR-CON M20 [Concomitant]
     Dosage: UNK
  10. ESTRACE [Concomitant]
     Dosage: 0.5 mg, UNK
  11. BYSTOLIC [Concomitant]
     Dosage: 10 mg, UNK
  12. VITAMIN C                          /00008001/ [Concomitant]
     Dosage: 500 mg, UNK
  13. ASPIRIN [Concomitant]
     Dosage: 81 mg, UNK
  14. CALCIUM 600+VIT D [Concomitant]
     Dosage: UNK
  15. TYLENOL /00020001/ [Concomitant]
     Dosage: 500 mg, UNK

REACTIONS (1)
  - Eye infection [Unknown]
